FAERS Safety Report 5212905-2 (Version None)
Quarter: 2007Q1

REPORT INFORMATION
  Report Type: 
  Country: None (occurrence: None)
  Receive Date: 20070116
  Receipt Date: 20070109
  Transmission Date: 20070707
  Serious: Yes (Other)
  Sender: FDA-Public Use
  Company Number: SPVI-2007-00106

PATIENT
  Sex: Female

DRUGS (1)
  1. DAYTRANA [Suspect]
     Dosage: 20 MG, TRANSDERMAL, 10MG, TRANSDERMAL
     Route: 062
     Dates: start: 20061101

REACTIONS (2)
  - BLOOD PRESSURE INCREASED [None]
  - TACHYCARDIA [None]
